FAERS Safety Report 5679590-7 (Version None)
Quarter: 2008Q1

REPORT INFORMATION
  Report Type: 
  Country: None (occurrence: None)
  Receive Date: 20080325
  Receipt Date: 20080314
  Transmission Date: 20080703
  Serious: Yes (Other)
  Sender: FDA-Public Use
  Company Number: FR-PFIZER INC-2008024370

PATIENT
  Sex: Female

DRUGS (5)
  1. CYTOTEC [Suspect]
     Indication: ABORTION
     Route: 048
     Dates: start: 20080226, end: 20080301
  2. CETIRIZINE HCL [Concomitant]
     Route: 048
  3. FOLIC ACID [Concomitant]
     Route: 048
  4. LANTUS [Concomitant]
     Indication: DIABETES MELLITUS
     Route: 058
  5. NOVORAPID [Concomitant]
     Indication: DIABETES MELLITUS
     Route: 058

REACTIONS (2)
  - ABORTION [None]
  - OFF LABEL USE [None]
